FAERS Safety Report 9378553 (Version 2)
Quarter: 2013Q4

REPORT INFORMATION
  Report Type: Report from Study
  Country: FR (occurrence: FR)
  Receive Date: 20130702
  Receipt Date: 20131225
  Transmission Date: 20140711
  Serious: Yes (Other)
  Sender: FDA-Public Use
  Company Number: FR-ROCHE-1238241

PATIENT
  Age: 47 Year
  Sex: Male
  Weight: 72 kg

DRUGS (4)
  1. RITUXIMAB [Suspect]
     Indication: MANTLE CELL LYMPHOMA
     Dosage: ON D4 OF CYCLE 1 AND THEN  D1 OF CYCLE.
     Route: 041
     Dates: start: 20110917, end: 20111116
  2. DEXAMETHASONE [Suspect]
     Indication: MANTLE CELL LYMPHOMA
     Dosage: ON DAY (D1) TO DAY 4  (D4)  OF CYCLE.
     Route: 041
     Dates: start: 20110914, end: 20111119
  3. CISPLATIN [Suspect]
     Indication: MANTLE CELL LYMPHOMA
     Dosage: ON DAY 1 CYCLE.
     Route: 041
     Dates: start: 20110914, end: 20111116
  4. CYTARABINE [Suspect]
     Indication: MANTLE CELL LYMPHOMA
     Dosage: ON DAY 1AND DAY 2 OF CYCLE.
     Route: 041
     Dates: start: 20110914, end: 20111117

REACTIONS (1)
  - Amyotrophy [Recovered/Resolved with Sequelae]
